FAERS Safety Report 26040931 (Version 1)
Quarter: 2025Q4

REPORT INFORMATION
  Report Type: Spontaneous
  Country: US (occurrence: None)
  Receive Date: 20251113
  Receipt Date: 20251113
  Transmission Date: 20260117
  Serious: Yes (Other)
  Sender: FDA-CTU
  Company Number: None

PATIENT
  Sex: Female

DRUGS (11)
  1. KISQALI [Suspect]
     Active Substance: RIBOCICLIB SUCCINATE
     Indication: Breast cancer female
     Dosage: FREQUENCY : DAILY;?FREQ: TAKE 3 TABLETS BY MOUTH DAILY ON DAYS 1-21, THEN 7 DAYS OFF EVERY 28 DAY CYCLE?
     Route: 048
     Dates: start: 20210123
  2. ANASTROZOLE [Concomitant]
     Active Substance: ANASTROZOLE
  3. ASPIRIN [Concomitant]
     Active Substance: ASPIRIN
  4. ATIVAN TAB1MG [Concomitant]
  5. CALCIUM GLUC CAP 50MG [Concomitant]
  6. LEVOTHYROXIN TAB 100MCG [Concomitant]
  7. LEVOTHYROXIN TAB 50MCG [Concomitant]
  8. LEVOTHYROXIN TAB 50MCG [Concomitant]
  9. PEPCID TAB 20MG [Concomitant]
  10. PLAVIX [Concomitant]
     Active Substance: CLOPIDOGREL BISULFATE
  11. SERTRALINE TAB 50MG [Concomitant]

REACTIONS (1)
  - Cerebrovascular accident [None]
